FAERS Safety Report 17210066 (Version 2)
Quarter: 2020Q1

REPORT INFORMATION
  Report Type: Spontaneous
  Country: SK (occurrence: SK)
  Receive Date: 20191227
  Receipt Date: 20200103
  Transmission Date: 20200409
  Serious: Yes (Hospitalization, Other)
  Sender: FDA-Public Use
  Company Number: SK-ROCHE-2510125

PATIENT
  Age: 26 Year
  Sex: Male

DRUGS (3)
  1. CLENBUTEROL [Suspect]
     Active Substance: CLENBUTEROL
     Indication: MUSCLE HYPERTROPHY
     Route: 065
  2. TESTOSTERONE. [Suspect]
     Active Substance: TESTOSTERONE
     Indication: MUSCLE HYPERTROPHY
     Route: 065
  3. SOMATROPIN. [Suspect]
     Active Substance: SOMATROPIN
     Indication: MUSCLE HYPERTROPHY
     Route: 065

REACTIONS (7)
  - Off label use [Unknown]
  - Hepatomegaly [Unknown]
  - Drug abuse [Unknown]
  - Intentional product use issue [Unknown]
  - Tachycardia [Unknown]
  - Phaeochromocytoma [Unknown]
  - Secondary hypertension [Unknown]
